FAERS Safety Report 10632820 (Version 1)
Quarter: 2014Q4

REPORT INFORMATION
  Report Type: Spontaneous
  Country: US (occurrence: US)
  Receive Date: 20141205
  Receipt Date: 20141205
  Transmission Date: 20150529
  Serious: No
  Sender: FDA-Public Use
  Company Number: US-BRISTOL-MYERS SQUIBB COMPANY-21616735

PATIENT
  Age: 75 Year
  Sex: Male

DRUGS (14)
  1. LISINOPRIL. [Concomitant]
     Active Substance: LISINOPRIL
  2. PREDNISONE. [Concomitant]
     Active Substance: PREDNISONE
  3. ALLOPURINOL. [Concomitant]
     Active Substance: ALLOPURINOL
  4. CARVEDILOL. [Concomitant]
     Active Substance: CARVEDILOL
  5. REQUIP [Concomitant]
     Active Substance: ROPINIROLE HYDROCHLORIDE
  6. FINASTERIDE. [Concomitant]
     Active Substance: FINASTERIDE
  7. OMEGA-3 ACIDS [Concomitant]
     Active Substance: OMEGA-3 FATTY ACIDS
  8. ASPIRIN. [Concomitant]
     Active Substance: ASPIRIN
  9. SPRYCEL [Suspect]
     Active Substance: DASATINIB
  10. GLUCOSAMINE [Concomitant]
     Active Substance: GLUCOSAMINE
  11. MULTIVITAMINS [Concomitant]
     Active Substance: VITAMINS
  12. OMEPRAZOLE. [Concomitant]
     Active Substance: OMEPRAZOLE
  13. ATORVASTATIN [Concomitant]
     Active Substance: ATORVASTATIN
  14. FLOMAX [Concomitant]
     Active Substance: TAMSULOSIN HYDROCHLORIDE

REACTIONS (4)
  - Decreased appetite [Unknown]
  - Dizziness [Unknown]
  - Abdominal discomfort [Unknown]
  - Weight decreased [Unknown]
